FAERS Safety Report 8714868 (Version 2)
Quarter: 2012Q4

REPORT INFORMATION
  Report Type: Report from Study
  Country: JP (occurrence: JP)
  Receive Date: 20120809
  Receipt Date: 20121001
  Transmission Date: 20130627
  Serious: Yes (Hospitalization, Other)
  Sender: FDA-Public Use
  Company Number: JP-ASTELLAS-2012US006739

PATIENT
  Age: 75 Year
  Sex: Male

DRUGS (17)
  1. ERLOTINIB TABLET [Suspect]
     Indication: ADENOCARCINOMA PANCREAS
     Dosage: 100 mg, UID/QD
     Route: 048
     Dates: start: 20120508, end: 20120516
  2. GEMCITABINE HCL [Concomitant]
     Indication: ADENOCARCINOMA PANCREAS
     Dosage: 1000 mg/m2, UID/QD
     Route: 041
     Dates: start: 20120507, end: 20120507
  3. GEMCITABINE HCL [Concomitant]
     Dosage: 1000 mg/m2, UID/QD
     Route: 041
     Dates: start: 20120514, end: 20120514
  4. GEMCITABINE HCL [Concomitant]
     Dosage: 1000 mg/m2, UID/QD
     Route: 041
     Dates: start: 20120521, end: 20120521
  5. GEMCITABINE HCL [Concomitant]
     Dosage: 1000 mg/m2, UID/QD
     Route: 041
     Dates: start: 20120607, end: 20120607
  6. GEMCITABINE HCL [Concomitant]
     Dosage: 1000 mg/m2, UID/QD
     Route: 041
     Dates: start: 20120614, end: 20120614
  7. GEMCITABINE HCL [Concomitant]
     Dosage: 1000 mg/m2, UID/QD
     Route: 041
     Dates: start: 20120621, end: 20120621
  8. GEMCITABINE HCL [Concomitant]
     Dosage: 1000 mg/m2, UID/QD
     Route: 041
     Dates: start: 20120705, end: 20120705
  9. GEMCITABINE HCL [Concomitant]
     Dosage: 1000 mg/m2, UID/QD
     Route: 041
     Dates: start: 20120712, end: 20120712
  10. GEMCITABINE HCL [Concomitant]
     Dosage: 1000 mg/m2, UID/QD
     Route: 041
     Dates: start: 20120719
  11. GASTER [Concomitant]
     Indication: PRODUCT USED FOR UNKNOWN INDICATION
     Dosage: 20 mg, UID/QD
     Route: 048
  12. LIPITOR [Concomitant]
     Indication: PRODUCT USED FOR UNKNOWN INDICATION
     Dosage: 5 mg, UID/QD
     Route: 048
  13. BLOPRESS [Concomitant]
     Indication: PRODUCT USED FOR UNKNOWN INDICATION
     Dosage: 12 mg, UID/QD
     Route: 048
  14. NORVASC [Concomitant]
     Indication: PRODUCT USED FOR UNKNOWN INDICATION
     Dosage: 5 mg, UID/QD
     Route: 048
  15. MAGNESIUM OXIDE [Concomitant]
     Indication: PRODUCT USED FOR UNKNOWN INDICATION
     Dosage: 3 g, UID/QD
     Route: 048
  16. MYSLEE [Concomitant]
     Indication: PRODUCT USED FOR UNKNOWN INDICATION
     Dosage: 5 mg, UID/QD
     Route: 048
     Dates: start: 20120510, end: 20120522
  17. BAYASPIRIN [Concomitant]
     Indication: PRODUCT USED FOR UNKNOWN INDICATION
     Dosage: 100 mg, UID/QD
     Route: 048

REACTIONS (5)
  - Hyperkalaemia [Recovered/Resolved]
  - Stomatitis [Recovering/Resolving]
  - Rash [Recovering/Resolving]
  - Hyperbilirubinaemia [Recovered/Resolved]
  - Decreased appetite [Recovered/Resolved]
